FAERS Safety Report 19986112 (Version 1)
Quarter: 2021Q4

REPORT INFORMATION
  Report Type: Spontaneous
  Country: CA (occurrence: CA)
  Receive Date: 20211022
  Receipt Date: 20211022
  Transmission Date: 20220303
  Serious: Yes (Disabling, Other)
  Sender: FDA-Public Use
  Company Number: CA-BAYER-2021A233453

PATIENT
  Age: 35 Year
  Sex: Female
  Weight: 102.04 kg

DRUGS (1)
  1. MIRENA [Suspect]
     Active Substance: LEVONORGESTREL
     Indication: Contraception
     Dosage: 20 ?G, CONT
     Route: 015

REACTIONS (2)
  - Abdominal pain [Unknown]
  - Loss of personal independence in daily activities [Unknown]
